FAERS Safety Report 22378889 (Version 1)
Quarter: 2023Q2

REPORT INFORMATION
  Report Type: Spontaneous
  Country: US (occurrence: None)
  Receive Date: 20230529
  Receipt Date: 20230529
  Transmission Date: 20230722
  Serious: No
  Sender: FDA-Public Use
  Company Number: 2023A121259

PATIENT
  Age: 73 Year

DRUGS (1)
  1. BREZTRI [Suspect]
     Active Substance: BUDESONIDE\FORMOTEROL\GLYCOPYRROLATE
     Indication: Bronchiectasis
     Route: 055
     Dates: start: 202305, end: 20230521

REACTIONS (6)
  - Oropharyngeal pain [Recovering/Resolving]
  - Pharyngeal erythema [Recovering/Resolving]
  - Throat irritation [Recovering/Resolving]
  - Odynophagia [Recovering/Resolving]
  - Product packaging issue [Unknown]
  - Wrong technique in device usage process [Unknown]

NARRATIVE: CASE EVENT DATE: 20230521
